FAERS Safety Report 4348377-X (Version None)
Quarter: 2004Q2

REPORT INFORMATION
  Report Type: 
  Country: None (occurrence: None)
  Receive Date: 20040427
  Receipt Date: 20040414
  Transmission Date: 20050107
  Serious: Yes (Other)
  Sender: FDA-Public Use
  Company Number: PHBS2004SE05025

PATIENT
  Age: 78 Year
  Sex: Male

DRUGS (4)
  1. ESIDRIX [Suspect]
     Indication: HYPERTENSION
     Dosage: 25 MG, Q48H
     Route: 048
     Dates: start: 20040301
  2. ADALAT [Concomitant]
  3. TENORMIN [Concomitant]
  4. TROMBYL [Concomitant]

REACTIONS (2)
  - ALANINE AMINOTRANSFERASE INCREASED [None]
  - ASPARTATE AMINOTRANSFERASE INCREASED [None]
